FAERS Safety Report 17199690 (Version 5)
Quarter: 2021Q3

REPORT INFORMATION
  Report Type: Report from Study
  Country: JP (occurrence: JP)
  Receive Date: 20191226
  Receipt Date: 20210910
  Transmission Date: 20211014
  Serious: Yes (Death, Life-Threatening, Other)
  Sender: FDA-Public Use
  Company Number: JP-ASTELLAS-2019JP029572

PATIENT
  Age: 77 Year
  Sex: Female
  Weight: 48 kg

DRUGS (8)
  1. POLARAMINE [Concomitant]
     Active Substance: DEXCHLORPHENIRAMINE MALEATE
     Indication: PROPHYLAXIS
     Route: 050
  2. ZYVOX [Concomitant]
     Active Substance: LINEZOLID
     Indication: SEPSIS
     Dosage: 1200 MG/DAY, UNKNOWN FREQ.
     Route: 050
     Dates: end: 20190416
  3. MEROPENEM. [Concomitant]
     Active Substance: MEROPENEM
     Indication: SEPSIS
     Dosage: 0.5 MG/DAY, UNKNOWN FREQ.
     Route: 050
     Dates: end: 20190408
  4. CANCIDAS [Concomitant]
     Active Substance: CASPOFUNGIN ACETATE
     Indication: PROPHYLAXIS
     Dosage: 5.0 MG/DAY, UNKNOWN FREQ.
     Route: 050
     Dates: end: 20190418
  5. NORADRENALINE [Concomitant]
     Active Substance: NOREPINEPHRINE
     Indication: SEPSIS
     Dosage: 4 MG/DAY, UNKNOWN FREQ.
     Route: 050
     Dates: end: 20190420
  6. LASIX [Concomitant]
     Active Substance: FUROSEMIDE
     Indication: CHRONIC KIDNEY DISEASE
     Dosage: 100 MG/DAY, UNKNOWN FREQ.
     Route: 050
     Dates: end: 20190428
  7. ASP2215 [Suspect]
     Active Substance: GILTERITINIB
     Indication: ACUTE MYELOID LEUKAEMIA REFRACTORY
     Route: 048
     Dates: start: 20190401, end: 20190415
  8. HUMAN SERUM ALBUMIN [Concomitant]
     Active Substance: ALBUMIN HUMAN
     Indication: SEPSIS
     Dosage: 250 ML/DAY, UNKNOWN FREQ.
     Route: 042
     Dates: start: 20190413, end: 20190414

REACTIONS (10)
  - Myelosuppression [Recovered/Resolved]
  - Pleural effusion [Recovered/Resolved]
  - Depressed level of consciousness [Unknown]
  - Sepsis [Recovered/Resolved]
  - Gastrointestinal haemorrhage [Recovered/Resolved]
  - Cardiac failure [Recovered/Resolved]
  - Acute myeloid leukaemia refractory [Fatal]
  - Ascites [Recovered/Resolved]
  - Acute kidney injury [Recovered/Resolved]
  - Neutrophil count decreased [Recovered/Resolved]

NARRATIVE: CASE EVENT DATE: 20190412
